FAERS Safety Report 5112481-9 (Version None)
Quarter: 2006Q3

REPORT INFORMATION
  Report Type: 
  Country: None (occurrence: None)
  Receive Date: 20060731
  Receipt Date: 20060615
  Transmission Date: 20061208
  Serious: No
  Sender: FDA-Public Use
  Company Number: 2006PV017105

PATIENT
  Age: 65 Year
  Sex: Female

DRUGS (2)
  1. BYETTA [Suspect]
     Indication: DIABETES MELLITUS NON-INSULIN-DEPENDENT
     Dosage: 5MCG;BID;SC
     Route: 058
     Dates: start: 20060612
  2. GLIMEPIRIDE [Concomitant]

REACTIONS (1)
  - BLOOD GLUCOSE INCREASED [None]
